FAERS Safety Report 24369873 (Version 1)
Quarter: 2024Q3

REPORT INFORMATION
  Report Type: Report from Study
  Country: CO (occurrence: CO)
  Receive Date: 20240927
  Receipt Date: 20240927
  Transmission Date: 20241017
  Serious: Yes (Other)
  Sender: ROCHE
  Company Number: CO-002147023-NVSC2024CO189380

PATIENT
  Age: 68 Year
  Sex: Female
  Weight: 67 kg

DRUGS (1)
  1. XOLAIR [Suspect]
     Active Substance: OMALIZUMAB
     Indication: Asthma
     Dosage: 450 MG, QMO
     Route: 050

REACTIONS (8)
  - Diabetes mellitus [Unknown]
  - Angina pectoris [Unknown]
  - Hypertension [Unknown]
  - Fall [Unknown]
  - Malaise [Unknown]
  - Pain [Recovering/Resolving]
  - Accident [Unknown]
  - Posture abnormal [Unknown]
